FAERS Safety Report 5378461-3 (Version None)
Quarter: 2007Q3

REPORT INFORMATION
  Report Type: 
  Country: None (occurrence: None)
  Receive Date: 20070705
  Receipt Date: 20070625
  Transmission Date: 20080115
  Serious: Yes (Hospitalization)
  Sender: FDA-Public Use
  Company Number: ES-AVENTIS-200713155EU

PATIENT
  Age: 80 Year
  Sex: Male

DRUGS (6)
  1. SEGURIL                            /00032601/ [Suspect]
     Route: 048
  2. ALDACTONE [Suspect]
     Route: 048
     Dates: end: 20070215
  3. RENITEC                            /00574901/ [Suspect]
     Route: 048
  4. TARDYFERON                         /00023503/ [Concomitant]
     Route: 048
     Dates: end: 20070223
  5. FRAXIPARINA [Concomitant]
     Route: 058
  6. NIMUSTINA [Concomitant]
     Route: 048

REACTIONS (3)
  - DRUG INTERACTION [None]
  - HYPERKALAEMIA [None]
  - RENAL FAILURE ACUTE [None]
